FAERS Safety Report 10221011 (Version 1)
Quarter: 2014Q2

REPORT INFORMATION
  Report Type: Report from Study
  Country: US (occurrence: None)
  Receive Date: 20140604
  Receipt Date: 20140604
  Transmission Date: 20141212
  Serious: Yes (Hospitalization)
  Sender: FDA-Public Use
  Company Number: UNT-2014-000053

PATIENT
  Age: 78 Year
  Sex: Female
  Weight: 94.8 kg

DRUGS (16)
  1. TREPROSTINIL SODIUM [Suspect]
     Indication: PULMONARY ARTERIAL HYPERTENSION
     Route: 055
     Dates: start: 20131009
  2. ADCIRCA (TADALAFIL) [Suspect]
     Indication: PULMONARY ARTERIAL HYPERTENSION
     Dates: start: 201009
  3. LETAIRIS (AMBRISENTAN) [Suspect]
     Indication: PULMONARY ARTERIAL HYPERTENSION
     Dates: start: 201110
  4. RIOCIGUAT [Suspect]
     Indication: PULMONARY ARTERIAL HYPERTENSION
     Dates: start: 201311
  5. ASPIRIN (ACETYLSALICYLIC ACID) [Concomitant]
  6. BUMEX (BUMETANIDE) [Concomitant]
  7. LANOXIN (DIGOXIN) [Concomitant]
  8. NOVOLOG (INSULIN ASPART) [Concomitant]
  9. LANTUS (INSULIN GLARGINE) [Concomitant]
  10. LEVOTHYROXIN (LEVOTHYROXINE SODIUM) [Concomitant]
  11. TOPROL (METOPROLOL SUCCINATE) [Concomitant]
  12. POTASSIUM CHLORIDE (POTASSIUM CHLORIDE) [Concomitant]
  13. PRAVACHOL (PRAVASTATIN SODIUM) [Concomitant]
  14. ALDACTONE /00006201/ (SPIRONOLACTONE) [Concomitant]
  15. DIOVAN (VALSARTAN) [Concomitant]
  16. AMBIEN (ZOLPIDEM TARTRATE) [Concomitant]

REACTIONS (15)
  - Pulmonary arterial hypertension [None]
  - Condition aggravated [None]
  - Blood pressure diastolic decreased [None]
  - Atrial fibrillation [None]
  - Cardioactive drug level increased [None]
  - Staphylococcus test positive [None]
  - Left ventricular hypertrophy [None]
  - Atelectasis [None]
  - Effusion [None]
  - Fluid overload [None]
  - Haemoglobin decreased [None]
  - Haematocrit decreased [None]
  - Blood sodium decreased [None]
  - Blood urea increased [None]
  - Blood glucose increased [None]
